FAERS Safety Report 19868482 (Version 1)
Quarter: 2021Q3

REPORT INFORMATION
  Report Type: Spontaneous
  Country: AU (occurrence: AU)
  Receive Date: 20210921
  Receipt Date: 20210921
  Transmission Date: 20211014
  Serious: Yes (Other)
  Sender: FDA-Public Use
  Company Number: AU-GILEAD-2021-0517396

PATIENT
  Age: 30 Year
  Sex: Female
  Weight: 51.9 kg

DRUGS (13)
  1. FOLIC ACID. [Concomitant]
     Active Substance: FOLIC ACID
     Indication: VITAMIN SUPPLEMENTATION
     Dosage: 5 MG
  2. INSULIN GLARGINE [Concomitant]
     Active Substance: INSULIN GLARGINE
  3. PARACETAMOL [Concomitant]
     Active Substance: ACETAMINOPHEN
  4. ASPIRIN [ACETYLSALICYLIC ACID] [Concomitant]
     Active Substance: ASPIRIN
     Indication: PROPHYLAXIS
  5. BETAMETHASONE. [Concomitant]
     Active Substance: BETAMETHASONE
  6. ASPIRIN [ACETYLSALICYLIC ACID] [Concomitant]
     Active Substance: ASPIRIN
     Indication: THROMBOSIS PROPHYLAXIS
     Dosage: 300 MG X 1/2
  7. NOVORAPID [Concomitant]
     Active Substance: INSULIN ASPART
     Dosage: 12 UNITS TDS WITH MEALS
  8. TOUJEO [Concomitant]
     Active Substance: INSULIN GLARGINE
     Dosage: 20 UNITS MANE
  9. DESCOVY [Suspect]
     Active Substance: EMTRICITABINE\TENOFOVIR ALAFENAMIDE FUMARATE
     Indication: ANTIRETROVIRAL THERAPY
     Dosage: 1 DOSAGE FORM, QD
     Route: 048
     Dates: start: 20210212
  10. DOLUTEGRAVIR [Concomitant]
     Active Substance: DOLUTEGRAVIR
     Indication: ANTIRETROVIRAL THERAPY
     Dosage: 50 MG
     Route: 048
     Dates: start: 20210212
  11. FERROUS SULFATE. [Concomitant]
     Active Substance: FERROUS SULFATE
     Indication: MINERAL SUPPLEMENTATION
     Dosage: 325 MG
  12. INSULIN ASPART [Concomitant]
     Active Substance: INSULIN ASPART
  13. TARGIN [Concomitant]
     Active Substance: NALOXONE HYDROCHLORIDE\OXYCODONE HYDROCHLORIDE

REACTIONS (5)
  - Foetal distress syndrome [Recovered/Resolved]
  - Premature labour [Recovered/Resolved]
  - Maternal exposure during pregnancy [Recovered/Resolved]
  - Placental disorder [Recovered/Resolved]
  - Exposure via body fluid [Recovered/Resolved]

NARRATIVE: CASE EVENT DATE: 20210617
